FAERS Safety Report 20110366 (Version 1)
Quarter: 2021Q4

REPORT INFORMATION
  Report Type: Spontaneous
  Country: US (occurrence: US)
  Receive Date: 20211124
  Receipt Date: 20211124
  Transmission Date: 20220303
  Serious: No
  Sender: FDA-Public Use
  Company Number: US-NOVOPROD-792557

PATIENT
  Age: 68 Year
  Sex: Female

DRUGS (1)
  1. NOVOLOG [Suspect]
     Active Substance: INSULIN ASPART
     Indication: Product used for unknown indication
     Dosage: UNK
     Route: 058
     Dates: start: 202009

REACTIONS (7)
  - Stress [Unknown]
  - Eye disorder [Not Recovered/Not Resolved]
  - Dysgeusia [Recovered/Resolved]
  - Tremor [Recovered/Resolved]
  - Blood glucose increased [Not Recovered/Not Resolved]
  - Product odour abnormal [Unknown]
  - Peripheral swelling [Not Recovered/Not Resolved]

NARRATIVE: CASE EVENT DATE: 20210225
